FAERS Safety Report 14250684 (Version 1)
Quarter: 2017Q4

REPORT INFORMATION
  Report Type: Spontaneous
  Country: US (occurrence: US)
  Receive Date: 20171205
  Receipt Date: 20171205
  Transmission Date: 20180321
  Serious: Yes (Other)
  Sender: FDA-Public Use
  Company Number: US-SUN PHARMACEUTICAL INDUSTRIES LTD-2017US-149335

PATIENT
  Age: 55 Year
  Sex: Female

DRUGS (2)
  1. METHYLPHENIDATE. [Suspect]
     Active Substance: METHYLPHENIDATE
     Indication: PRODUCT USED FOR UNKNOWN INDICATION
     Dosage: 30-100 MG, DAILY
     Route: 065
  2. METHAPYRILENE. [Suspect]
     Active Substance: METHAPYRILENE
     Indication: PRODUCT USED FOR UNKNOWN INDICATION
     Dosage: UPTO 250 MG, DAILY
     Route: 065

REACTIONS (2)
  - Choreoathetosis [Recovered/Resolved]
  - Drug abuse [Unknown]
